FAERS Safety Report 5947237-8 (Version None)
Quarter: 2008Q4

REPORT INFORMATION
  Report Type: 
  Country: None (occurrence: None)
  Receive Date: 20081110
  Receipt Date: 20081107
  Transmission Date: 20090506
  Serious: Yes (Hospitalization)
  Sender: FDA-Public Use
  Company Number: US-ROXANE LABORATORIES, INC.-2008-BP-12395RO

PATIENT
  Sex: Female
  Weight: 64 kg

DRUGS (36)
  1. LITHIUM CARBONATE [Suspect]
     Indication: BIPOLAR DISORDER
     Dosage: 600MG
     Dates: start: 19980227, end: 20070608
  2. AMBIEN [Concomitant]
     Dosage: 10MG
     Dates: start: 20030319, end: 20051024
  3. DEPAKOTE ER [Concomitant]
     Dosage: 250MG
     Dates: start: 20080220, end: 20080327
  4. DESYREL [Concomitant]
     Dosage: 50MG
     Dates: start: 19980831, end: 20021010
  5. DESYREL [Concomitant]
     Dosage: 100MG
     Dates: start: 20021010, end: 20030319
  6. EFFEXOR XR [Concomitant]
     Dosage: 150MG
     Dates: start: 20030813, end: 20040126
  7. EFFEXOR XR [Concomitant]
     Dosage: 225MG
     Dates: start: 20040126, end: 20040226
  8. EFFEXOR XR [Concomitant]
     Dosage: 150MG
     Dates: start: 20040226, end: 20040415
  9. ELAVIL [Concomitant]
     Dosage: 25MG
     Dates: start: 19980430, end: 19980505
  10. ELAVIL [Concomitant]
     Dosage: 50MG
     Dates: start: 19980505, end: 19981109
  11. ELAVIL [Concomitant]
     Dosage: 100MG
     Dates: start: 19981109, end: 20030916
  12. LAMICTAL [Concomitant]
     Dosage: 100MG
     Dates: start: 20071119, end: 20080116
  13. LAMICTAL [Concomitant]
     Dosage: 100MG
     Dates: start: 20080327, end: 20080409
  14. LAMICTAL [Concomitant]
     Dosage: 200MG
     Dates: start: 20080409
  15. LUNESTA [Concomitant]
     Indication: SLEEP DISORDER
     Dosage: 3MG
     Dates: start: 20051024, end: 20070329
  16. LUNESTA [Concomitant]
     Dosage: 6MG
     Dates: start: 20070329
  17. NEURONTIN [Concomitant]
     Dosage: 900MG
     Dates: start: 20001201, end: 20020227
  18. NEURONTIN [Concomitant]
     Dosage: 900MG
     Dates: start: 20020522, end: 20050125
  19. PAXIL [Concomitant]
     Dosage: 20MG
     Dates: start: 19970508, end: 19970609
  20. PAXIL [Concomitant]
     Dosage: 40MG
     Dates: start: 19970609, end: 19980130
  21. PAXIL [Concomitant]
     Dosage: 10MG
     Dates: start: 19980130, end: 19980326
  22. PAXIL [Concomitant]
     Dosage: 20MG
     Dates: start: 19980326, end: 19980528
  23. PAXIL [Concomitant]
     Dosage: 40MG
     Dates: start: 19980528, end: 19981022
  24. PAXIL [Concomitant]
     Dosage: 60MG
     Dates: start: 19981022, end: 20070906
  25. PAXIL [Concomitant]
     Dosage: 80MG
     Dates: start: 20070906
  26. SEROQUEL [Concomitant]
     Indication: BIPOLAR DISORDER
     Dates: start: 20030916, end: 20040712
  27. SEROQUEL [Concomitant]
     Dosage: 200MG
     Dates: start: 20040712, end: 20061025
  28. SEROQUEL [Concomitant]
     Dosage: 300MG
     Dates: start: 20061025, end: 20070220
  29. SEROQUEL [Concomitant]
     Dosage: 400MG
     Dates: start: 20070220, end: 20070814
  30. SEROQUEL [Concomitant]
     Dosage: 800MG
     Dates: start: 20070814
  31. TRILEPTAL [Concomitant]
     Dosage: 300MG
     Dates: start: 20080116, end: 20080220
  32. BLOOD PRESSURE MEDICATION [Concomitant]
  33. BETAXOLOL [Concomitant]
  34. LISINOPRIL [Concomitant]
  35. XANAX [Concomitant]
  36. HYDROCODONE [Concomitant]

REACTIONS (10)
  - BONE DISORDER [None]
  - BONE PAIN [None]
  - DRUG SCREEN POSITIVE [None]
  - MALNUTRITION [None]
  - ORAL PAIN [None]
  - RENAL DISORDER [None]
  - RENAL FAILURE [None]
  - TOOTH DISORDER [None]
  - TOOTH EXTRACTION [None]
  - TOOTH LOSS [None]
